FAERS Safety Report 8248574-7 (Version None)
Quarter: 2012Q1

REPORT INFORMATION
  Report Type: 
  Country: None (occurrence: None)
  Receive Date: 20120330
  Receipt Date: 20120326
  Transmission Date: 20120608
  Serious: Yes (Death)
  Sender: FDA-Public Use
  Company Number: FR-ASTRAZENECA-2012SE20575

PATIENT
  Age: 19460 Day
  Sex: Male

DRUGS (11)
  1. MIDAZOLAM [Suspect]
     Indication: GENERAL ANAESTHESIA
     Route: 042
     Dates: start: 20081010, end: 20081010
  2. LEXOMIL [Concomitant]
     Dates: start: 20081009
  3. LIDOCAINE HCL [Suspect]
     Route: 037
     Dates: start: 20081010, end: 20081010
  4. SUFENTANIL CITRATE [Suspect]
     Indication: GENERAL ANAESTHESIA
     Route: 042
     Dates: start: 20081010, end: 20081010
  5. PROPOFOL [Suspect]
     Route: 042
     Dates: start: 20081010, end: 20081010
  6. IMOVANE [Concomitant]
     Dates: start: 20081009
  7. PROPOFOL [Suspect]
     Indication: GENERAL ANAESTHESIA
     Route: 042
     Dates: start: 20081010, end: 20081010
  8. MIVACRON [Suspect]
     Indication: GENERAL ANAESTHESIA
     Route: 042
     Dates: start: 20081010, end: 20081010
  9. LEXOMIL [Concomitant]
     Dates: start: 20081010
  10. LIDOCAINE HCL [Suspect]
     Route: 058
     Dates: start: 20081010, end: 20081010
  11. OMEPRAZOLE [Concomitant]
     Dates: start: 20081009

REACTIONS (1)
  - CARDIAC ARREST [None]
